FAERS Safety Report 5200667-4 (Version None)
Quarter: 2006Q4

REPORT INFORMATION
  Report Type: 
  Country: None (occurrence: None)
  Receive Date: 20061016
  Receipt Date: 20060630
  Transmission Date: 20070319
  Serious: No
  Sender: FDA-Public Use
  Company Number: 2006SP002600

PATIENT
  Age: 81 Year
  Sex: Male

DRUGS (1)
  1. LUNESTA [Suspect]
     Dosage: 3 MG; 1X; ORAL
     Route: 048
     Dates: start: 20060101, end: 20060101

REACTIONS (2)
  - SOMNOLENCE [None]
  - STUPOR [None]
